FAERS Safety Report 20951535 (Version 1)
Quarter: 2022Q2

REPORT INFORMATION
  Report Type: Other
  Country: GB (occurrence: GB)
  Receive Date: 20220613
  Receipt Date: 20220613
  Transmission Date: 20220721
  Serious: Yes (Other)
  Sender: FDA-Public Use
  Company Number: GB-MACLEODS PHARMA UK LTD-MAC2022035988

PATIENT

DRUGS (2)
  1. ARIPIPRAZOLE [Suspect]
     Active Substance: ARIPIPRAZOLE
     Indication: Schizophrenia
     Dosage: 400 MILLIGRAM (INJECTION, ONCE IN FOUR WEEKS, MAINTENA),
     Route: 030
     Dates: start: 20220110
  2. AMLODIPINE [Concomitant]
     Active Substance: AMLODIPINE BESYLATE
     Indication: Blood pressure abnormal
     Dosage: UNK
     Route: 065
     Dates: start: 2003

REACTIONS (1)
  - Disorientation [Recovered/Resolved]

NARRATIVE: CASE EVENT DATE: 20220201
